FAERS Safety Report 13219305 (Version 1)
Quarter: 2017Q1

REPORT INFORMATION
  Report Type: Other
  Country: US (occurrence: US)
  Receive Date: 20170210
  Receipt Date: 20170210
  Transmission Date: 20170428
  Serious: No
  Sender: FDA-Public Use
  Company Number: US-ACORDA-ACO_127435_2016

PATIENT
  Age: 30 Year
  Sex: Female

DRUGS (1)
  1. AMPYRA [Suspect]
     Active Substance: DALFAMPRIDINE
     Indication: PRODUCT USED FOR UNKNOWN INDICATION
     Dosage: UNK
     Route: 065

REACTIONS (14)
  - Fall [Unknown]
  - Anxiety [Unknown]
  - Muscular weakness [Unknown]
  - Micturition urgency [Unknown]
  - Irritability [Unknown]
  - Fatigue [Unknown]
  - Pollakiuria [Unknown]
  - Animal bite [Unknown]
  - Pain [Unknown]
  - Multiple sclerosis [Unknown]
  - Balance disorder [Unknown]
  - Memory impairment [Unknown]
  - Depression [Unknown]
  - Hypoaesthesia [Unknown]
